FAERS Safety Report 5096304-2 (Version None)
Quarter: 2006Q3

REPORT INFORMATION
  Report Type: 
  Country: None (occurrence: None)
  Receive Date: 20060905
  Receipt Date: 20060801
  Transmission Date: 20061208
  Serious: Yes (Death)
  Sender: FDA-Public Use
  Company Number: US-AVENTIS-200616427US

PATIENT
  Age: 71 Year
  Sex: Male
  Weight: 67.73 kg

DRUGS (1)
  1. KETEK [Suspect]
     Indication: SINUSITIS
     Route: 048
     Dates: start: 20060428, end: 20060429

REACTIONS (1)
  - DEATH [None]
